FAERS Safety Report 8496284-3 (Version None)
Quarter: 2012Q3

REPORT INFORMATION
  Report Type: 
  Country: None (occurrence: None)
  Receive Date: 20120709
  Receipt Date: 20120626
  Transmission Date: 20120928
  Serious: No
  Sender: FDA-Public Use
  Company Number: US-ASTRAZENECA-2012SE42989

PATIENT
  Age: 44 Year
  Sex: Female
  Weight: 54 kg

DRUGS (2)
  1. SYMBICORT [Suspect]
     Indication: ASTHMA
     Dosage: 160/4.5 MCG, 2 PUFF, BID
     Route: 055
  2. SYMBICORT [Suspect]
     Dosage: 160/4.5 MCG, 1 PUFF, EVERY DAY
     Route: 055

REACTIONS (2)
  - DYSPNOEA [None]
  - OFF LABEL USE [None]
